FAERS Safety Report 23608110 (Version 4)
Quarter: 2024Q2

REPORT INFORMATION
  Report Type: Spontaneous
  Country: FR (occurrence: FR)
  Receive Date: 20240307
  Receipt Date: 20240409
  Transmission Date: 20240716
  Serious: Yes (Death, Life-Threatening, Hospitalization, Other)
  Sender: FDA-Public Use
  Company Number: FR-BIOVITRUM-2024-FR-003758

PATIENT

DRUGS (4)
  1. PEGCETACOPLAN [Suspect]
     Active Substance: PEGCETACOPLAN
     Indication: Paroxysmal nocturnal haemoglobinuria
     Dosage: 3 INJECTIONS A WEEK
     Route: 058
     Dates: start: 20230620
  2. PEGCETACOPLAN [Suspect]
     Active Substance: PEGCETACOPLAN
     Dosage: 2 INJECTIONS PER DAY
     Route: 058
     Dates: start: 20230621
  3. PEGCETACOPLAN [Suspect]
     Active Substance: PEGCETACOPLAN
     Dosage: THEN 3 INJECTIONS PER DAY SINCE 3 WEEKS (IE 28-FEB-2024)
     Route: 058
     Dates: start: 20240228
  4. PEGCETACOPLAN [Suspect]
     Active Substance: PEGCETACOPLAN
     Dosage: 2 INJECTIONS PER DAY THEN 3 INJECTIONS PER DAY SINCE 3 WEEKS (IE 28-FEB-2024).
     Route: 058
     Dates: start: 202307

REACTIONS (6)
  - Lung disorder [Fatal]
  - Pulmonary embolism [Fatal]
  - Thrombosis [Fatal]
  - Off label use [Unknown]
  - Sepsis [Fatal]
  - Leukaemia [Fatal]

NARRATIVE: CASE EVENT DATE: 20240304
